FAERS Safety Report 8792212 (Version 2)
Quarter: 2013Q3

REPORT INFORMATION
  Report Type: Spontaneous
  Country: FR (occurrence: FR)
  Receive Date: 20120918
  Receipt Date: 20130705
  Transmission Date: 20140515
  Serious: Yes (Hospitalization)
  Sender: FDA-Public Use
  Company Number: FR-BAYER-2012-094978

PATIENT
  Age: 76 Year
  Sex: Female

DRUGS (8)
  1. NEXAVAR [Suspect]
     Indication: RENAL CANCER
     Dosage: 200 MG, UNK
     Route: 048
     Dates: start: 2009
  2. DUROGESIC [Suspect]
     Indication: PAIN
     Dosage: UNK
     Route: 062
     Dates: start: 201205
  3. TAHOR [Concomitant]
     Indication: ISCHAEMIC STROKE
     Dosage: UNK
     Route: 048
     Dates: start: 201201
  4. KARDEGIC [Concomitant]
     Indication: ISCHAEMIC STROKE
     Dosage: UNK
     Route: 048
     Dates: start: 201201
  5. EZETROL [Concomitant]
  6. PLAVIX [Concomitant]
  7. MICARDIS [Concomitant]
  8. LEVOTHYROX [Concomitant]

REACTIONS (1)
  - Psoriasis [Not Recovered/Not Resolved]
